FAERS Safety Report 5136921-4 (Version None)
Quarter: 2006Q4

REPORT INFORMATION
  Report Type: 
  Country: None (occurrence: None)
  Receive Date: 20061023
  Receipt Date: 20061010
  Transmission Date: 20070319
  Serious: Yes (Life-Threatening, Other)
  Sender: FDA-Public Use
  Company Number: 2006120186

PATIENT
  Age: 29 Year
  Sex: Male

DRUGS (1)
  1. ZELDOX [Suspect]
     Indication: SCHIZOPHRENIA
     Dosage: 120 MG (60 MG, 2 IN 1 D), ORAL
     Route: 048

REACTIONS (2)
  - DRUG INEFFECTIVE [None]
  - MANIA [None]
